FAERS Safety Report 5817607-7 (Version None)
Quarter: 2008Q3

REPORT INFORMATION
  Report Type: 
  Country: None (occurrence: None)
  Receive Date: 20080716
  Receipt Date: 20080701
  Transmission Date: 20090109
  Serious: Yes (Death)
  Sender: FDA-Public Use
  Company Number: TNZFR200800116

PATIENT
  Age: 92 Year
  Sex: Female
  Weight: 55 kg

DRUGS (9)
  1. INNOHEP [Suspect]
     Indication: THROMBOSIS PROPHYLAXIS
     Dosage: (4500 IU), SUBCUTANEOUS
     Route: 058
     Dates: start: 20080626, end: 20080702
  2. INNOHEP [Suspect]
  3. INNOHEP [Suspect]
  4. INNOHEP [Suspect]
  5. LASILIX 20 (FUROSEMIDE) [Concomitant]
  6. FLODIL LP 5 (FELODIPINE) [Concomitant]
  7. AMIODARONE HCL [Concomitant]
  8. LEXOMIL (BROMAZEPAM) [Concomitant]
  9. NOROXINE 400 (NORFLOXACIN) [Concomitant]

REACTIONS (7)
  - ATRIAL FIBRILLATION [None]
  - GENERAL PHYSICAL HEALTH DETERIORATION [None]
  - HYPERCAPNIA [None]
  - HYPOTENSION [None]
  - HYPOXIA [None]
  - LUNG INFECTION [None]
  - PULMONARY EMBOLISM [None]
